APPROVED DRUG PRODUCT: NIACIN
Active Ingredient: NIACIN
Strength: 1GM
Dosage Form/Route: TABLET, EXTENDED RELEASE;ORAL
Application: A200484 | Product #002 | TE Code: AB
Applicant: SUN PHARMACEUTICAL INDUSTRIES LTD
Approved: Apr 23, 2014 | RLD: No | RS: Yes | Type: RX